FAERS Safety Report 5738497-7 (Version None)
Quarter: 2008Q2

REPORT INFORMATION
  Report Type: 
  Country: None (occurrence: None)
  Receive Date: 20080515
  Receipt Date: 20080505
  Transmission Date: 20081010
  Serious: Yes (Death)
  Sender: FDA-Public Use
  Company Number: JP-RANBAXY-2008RR-14942

PATIENT

DRUGS (4)
  1. LAMIVUDINE [Suspect]
     Dosage: 800 MG, QD
  2. ZIDOVUDINE [Suspect]
     Dosage: 400 MG, QD
  3. LOPINAVIR [Suspect]
     Dosage: 800 MG, QD
  4. RITONAVIR [Suspect]
     Dosage: 200 MG, QD

REACTIONS (5)
  - IMMUNE RECONSTITUTION SYNDROME [None]
  - PNEUMONIA [None]
  - PULMONARY OEDEMA [None]
  - RENAL FAILURE [None]
  - RESPIRATORY FAILURE [None]
